FAERS Safety Report 19115834 (Version 4)
Quarter: 2021Q2

REPORT INFORMATION
  Report Type: Spontaneous
  Country: US (occurrence: US)
  Receive Date: 20210409
  Receipt Date: 20210630
  Transmission Date: 20210717
  Serious: No
  Sender: FDA-Public Use
  Company Number: US-BIOGEN-2021BI00998137

PATIENT
  Age: 28 Year
  Sex: Female

DRUGS (7)
  1. AVONEX [Suspect]
     Active Substance: INTERFERON BETA-1A
     Dosage: WEEK 1
     Route: 030
     Dates: start: 20190421
  2. AVONEX [Suspect]
     Active Substance: INTERFERON BETA-1A
     Dosage: WEEK 3
     Route: 030
  3. AVONEX [Suspect]
     Active Substance: INTERFERON BETA-1A
     Dosage: WEEK 2
     Route: 030
  4. AVONEX [Suspect]
     Active Substance: INTERFERON BETA-1A
     Indication: MULTIPLE SCLEROSIS
     Route: 030
     Dates: start: 20180801, end: 20190310
  5. AVONEX [Suspect]
     Active Substance: INTERFERON BETA-1A
     Dosage: WEEK 4
     Route: 030
     Dates: start: 20210430
  6. AVONEX [Suspect]
     Active Substance: INTERFERON BETA-1A
     Dosage: WEEK 1
     Route: 030
     Dates: start: 20210409
  7. AVONEX [Suspect]
     Active Substance: INTERFERON BETA-1A
     Dosage: WEEK 2
     Route: 030
     Dates: start: 20210416

REACTIONS (4)
  - Illness [Recovered/Resolved]
  - Product storage error [Unknown]
  - Product dose omission issue [Unknown]
  - Migraine [Recovered/Resolved]

NARRATIVE: CASE EVENT DATE: 202104
